FAERS Safety Report 7952296-7 (Version None)
Quarter: 2011Q4

REPORT INFORMATION
  Report Type: 
  Country: None (occurrence: None)
  Receive Date: 20111201
  Receipt Date: 20111128
  Transmission Date: 20120403
  Serious: Yes (Other)
  Sender: FDA-Public Use
  Company Number: GB-PFIZER INC-2011276450

PATIENT
  Age: 27 Year
  Sex: Male

DRUGS (8)
  1. AZITHROMYCIN [Suspect]
     Indication: URETHRITIS
     Dosage: 500 MG, 2X/DAY
     Route: 048
     Dates: start: 20111014
  2. LACTULOSE [Concomitant]
  3. MINIMS CHLORAMPHENICOL [Concomitant]
  4. CEPHALEXIN [Suspect]
     Indication: URETHRITIS
     Dosage: 500 MG, 3X/DAY
     Route: 048
     Dates: start: 20111014, end: 20111019
  5. ACETAMINOPHEN AND CODEINE PHOSPHATE [Concomitant]
  6. METRONIDAZOLE [Concomitant]
  7. PROCHLORPERAZINE [Concomitant]
  8. FLUCLOXACILLIN [Concomitant]

REACTIONS (2)
  - ERECTILE DYSFUNCTION [None]
  - LOSS OF LIBIDO [None]
